FAERS Safety Report 5476085-0 (Version None)
Quarter: 2007Q4

REPORT INFORMATION
  Report Type: 
  Country: None (occurrence: None)
  Receive Date: 20071003
  Receipt Date: 20070921
  Transmission Date: 20080405
  Serious: Yes (Hospitalization)
  Sender: FDA-Public Use
  Company Number: US-ELI_LILLY_AND_COMPANY-US200709004540

PATIENT
  Sex: Female

DRUGS (6)
  1. CYMBALTA [Suspect]
     Dosage: 90 MG, DAILY (1/D)
     Route: 048
     Dates: start: 20070830, end: 20070919
  2. CYMBALTA [Suspect]
     Dosage: 90 MG, DAILY (1/D)
     Route: 048
     Dates: start: 20070911, end: 20070919
  3. SYNTHROID [Concomitant]
     Dosage: 100 UG, EACH MORNING
  4. PERCOCET [Concomitant]
     Indication: BACK PAIN
     Dosage: 1 D/F, 4/D
  5. COUMADIN [Concomitant]
  6. LEXAPRO [Concomitant]

REACTIONS (12)
  - ANXIETY [None]
  - ASTHENIA [None]
  - CHEST PAIN [None]
  - COLITIS [None]
  - DEPRESSED MOOD [None]
  - DIARRHOEA [None]
  - HEPATIC CYST [None]
  - MALAISE [None]
  - PALPITATIONS [None]
  - PROTHROMBIN TIME ABNORMAL [None]
  - PSYCHIATRIC SYMPTOM [None]
  - VOMITING [None]
